FAERS Safety Report 7168075-7 (Version None)
Quarter: 2010Q4

REPORT INFORMATION
  Report Type: 
  Country: None (occurrence: None)
  Receive Date: 20101216
  Receipt Date: 20101207
  Transmission Date: 20110411
  Serious: Yes (Hospitalization)
  Sender: FDA-Public Use
  Company Number: PHHO2010US18388

PATIENT
  Sex: Female

DRUGS (5)
  1. AMN107 AMN+CAP [Suspect]
     Indication: CHRONIC MYELOID LEUKAEMIA
     Dosage: 300 MG, BID
     Route: 048
     Dates: start: 20080616, end: 20101119
  2. AMN107 AMN+CAP [Suspect]
     Dosage: UNK
     Dates: start: 20101120, end: 20101127
  3. AMN107 AMN+CAP [Suspect]
     Dosage: UNK
     Dates: start: 20101128, end: 20101201
  4. AMN107 AMN+CAP [Suspect]
     Dosage: UNK
     Dates: start: 20101202, end: 20101206
  5. AMN107 AMN+CAP [Suspect]
     Dosage: UNK
     Dates: start: 20101207

REACTIONS (5)
  - CORONARY ARTERY BYPASS [None]
  - CORONARY ARTERY DISEASE [None]
  - HYPOXIA [None]
  - PULMONARY OEDEMA [None]
  - RENAL FAILURE ACUTE [None]
